FAERS Safety Report 7633024-1 (Version None)
Quarter: 2011Q3

REPORT INFORMATION
  Report Type: 
  Country: None (occurrence: None)
  Receive Date: 20110725
  Receipt Date: 20110714
  Transmission Date: 20111222
  Serious: Yes (Other)
  Sender: FDA-Public Use
  Company Number: PHHY2010DE67549

PATIENT
  Sex: Female

DRUGS (5)
  1. ZOLEDRONOC ACID [Suspect]
     Indication: OSTEOPOROSIS
     Dosage: 5 MG, TWICE YEARLY
     Route: 042
     Dates: start: 20080201
  2. NUTRITION SUPPLEMENTS [Concomitant]
  3. AROMASIN [Concomitant]
  4. LEVOTHYROXINE SODIUM [Concomitant]
  5. ZOLEDRONOC ACID [Suspect]
     Dosage: 5 MG TWICE YEARLY
     Route: 042
     Dates: start: 20101007

REACTIONS (6)
  - FEELING ABNORMAL [None]
  - OSTEOPOROSIS [None]
  - METASTASIS [None]
  - BONE PAIN [None]
  - INFLUENZA [None]
  - ASTHENIA [None]
